FAERS Safety Report 22189149 (Version 7)
Quarter: 2023Q2

REPORT INFORMATION
  Report Type: Report from Study
  Country: GR (occurrence: GR)
  Receive Date: 20230410
  Receipt Date: 20230626
  Transmission Date: 20230722
  Serious: Yes (Other)
  Sender: FDA-Public Use
  Company Number: GR-ABBVIE-4253033

PATIENT
  Sex: Male

DRUGS (5)
  1. CARBIDOPA\LEVODOPA [Suspect]
     Active Substance: CARBIDOPA\LEVODOPA
     Indication: Parkinson^s disease
     Dosage: MORNING DOSE: 2.5ML (DUE TO 24HRS ADMINISTRATION); CONTINUOUS RATE: 4.0ML/H; EXTRA DOSE: 2.5ML
     Route: 050
     Dates: start: 20190906
  2. CARBIDOPA\LEVODOPA [Suspect]
     Active Substance: CARBIDOPA\LEVODOPA
     Dosage: MORNING DOSE: 0.0 ML, CONTINUOUS RATE: 5.0 ML/H (IN THE MORNING) AND 4.0ML/H (IN THE NIGHT), EXTR...
     Route: 050
  3. CARBIDOPA\LEVODOPA [Suspect]
     Active Substance: CARBIDOPA\LEVODOPA
     Dosage: SEE ADVERSE EVENT DESCRIPTION
     Route: 050
     Dates: start: 20230117
  4. CARBIDOPA\LEVODOPA [Suspect]
     Active Substance: CARBIDOPA\LEVODOPA
     Dosage: SEE ADVERSE EVENT DESCRIPTION
     Route: 050
  5. OCTENIDINE\PHENOXYETHANOL [Concomitant]
     Active Substance: OCTENIDINE\PHENOXYETHANOL
     Indication: Stoma care

REACTIONS (10)
  - Embedded device [Recovered/Resolved]
  - Device issue [Unknown]
  - Weight decreased [Not Recovered/Not Resolved]
  - Incorrect route of product administration [Recovered/Resolved]
  - Stoma site reaction [Recovered/Resolved]
  - Device dislocation [Unknown]
  - Fistula [Recovered/Resolved]
  - Device difficult to use [Not Recovered/Not Resolved]
  - Atrophy [Not Recovered/Not Resolved]
  - Life expectancy shortened [Not Recovered/Not Resolved]
